FAERS Safety Report 20682574 (Version 1)
Quarter: 2022Q2

REPORT INFORMATION
  Report Type: Spontaneous
  Country: US (occurrence: US)
  Receive Date: 20220407
  Receipt Date: 20220407
  Transmission Date: 20220721
  Serious: No
  Sender: FDA-Public Use
  Company Number: US-TEVA-2022-US-2017515

PATIENT
  Age: 66 Year
  Sex: Male
  Weight: 99.77 kg

DRUGS (2)
  1. FEXOFENADINE [Suspect]
     Active Substance: FEXOFENADINE HYDROCHLORIDE
     Indication: Hypersensitivity
     Dosage: 180 MILLIGRAM DAILY; 1/2 A TABLET TWICE DAILY
     Route: 048
     Dates: start: 2007
  2. LOSARTAN [Concomitant]
     Active Substance: LOSARTAN
     Dates: start: 2019

REACTIONS (4)
  - Therapeutic product effect incomplete [Unknown]
  - Wrong technique in product usage process [Unknown]
  - Inappropriate schedule of product administration [Unknown]
  - Product administered to patient of inappropriate age [Unknown]
